FAERS Safety Report 4345808-6 (Version None)
Quarter: 2004Q2

REPORT INFORMATION
  Report Type: 
  Country: None (occurrence: None)
  Receive Date: 20040424
  Receipt Date: 20040420
  Transmission Date: 20050107
  Serious: Yes (Hospitalization)
  Sender: FDA-Public Use
  Company Number: JP-MERCK-0404USA01876

PATIENT
  Age: 18 Year
  Sex: Female

DRUGS (2)
  1. CLINORIL [Suspect]
     Indication: NASOPHARYNGITIS
     Route: 048
     Dates: start: 19840626, end: 19840630
  2. CLINORIL [Suspect]
     Route: 048
     Dates: start: 19840705, end: 19840701

REACTIONS (2)
  - DRUG ERUPTION [None]
  - DRUG HYPERSENSITIVITY [None]
